FAERS Safety Report 23456883 (Version 2)
Quarter: 2024Q1

REPORT INFORMATION
  Report Type: Spontaneous
  Country: US (occurrence: US)
  Receive Date: 20240130
  Receipt Date: 20240214
  Transmission Date: 20240410
  Serious: No
  Sender: FDA-Public Use
  Company Number: US-BIOVITRUM-2024-US-001318

PATIENT
  Age: 64 Year
  Sex: Male

DRUGS (1)
  1. KINERET [Suspect]
     Active Substance: ANAKINRA
     Indication: Rheumatoid arthritis
     Dosage: 100 MG, DAILY
     Route: 058
     Dates: start: 20190420

REACTIONS (4)
  - Pain [Unknown]
  - Irritability [Unknown]
  - Product dose omission issue [Unknown]
  - Product use issue [Unknown]
